FAERS Safety Report 23563986 (Version 2)
Quarter: 2024Q1

REPORT INFORMATION
  Report Type: Report from Study
  Country: IL (occurrence: IL)
  Receive Date: 20240226
  Receipt Date: 20240227
  Transmission Date: 20240410
  Serious: Yes (Hospitalization)
  Sender: FDA-Public Use
  Company Number: IL-ABBVIE-22K-082-4350056-00

PATIENT
  Age: 78 Year
  Sex: Female

DRUGS (51)
  1. VENETOCLAX [Suspect]
     Active Substance: VENETOCLAX
     Indication: Acute myeloid leukaemia
     Dosage: 100 MILLIGRAM?DURATION TEXT: RAMP UP
     Route: 048
     Dates: start: 20211213, end: 20211213
  2. VENETOCLAX [Suspect]
     Active Substance: VENETOCLAX
     Indication: Acute myeloid leukaemia
     Dosage: 200 MILLIGRAM?DURATION TEXT: RAMP UP
     Route: 048
     Dates: start: 20211214, end: 20211214
  3. VENETOCLAX [Suspect]
     Active Substance: VENETOCLAX
     Indication: Acute myeloid leukaemia
     Dosage: 400 MILLIGRAM?DURATION TEXT: RAMP UP
     Route: 048
     Dates: start: 20211215, end: 20211218
  4. VENETOCLAX [Suspect]
     Active Substance: VENETOCLAX
     Indication: Acute myeloid leukaemia
     Dosage: 300 MILLIGRAM?DURATION TEXT: INTERRUPTION-COUNT RECOVERY
     Route: 048
     Dates: start: 20220807, end: 20220820
  5. VENETOCLAX [Suspect]
     Active Substance: VENETOCLAX
     Indication: Acute myeloid leukaemia
     Dosage: 300 MILLIGRAM?DURATION TEXT: RAMP UP
     Route: 048
     Dates: start: 20211220, end: 20220105
  6. VENETOCLAX [Suspect]
     Active Substance: VENETOCLAX
     Indication: Acute myeloid leukaemia
     Dosage: 400 MILLIGRAM?DURATION TEXT: INTERRUPTION - COUNT RECOVERY
     Route: 048
     Dates: start: 20220116, end: 20220205
  7. VENETOCLAX [Suspect]
     Active Substance: VENETOCLAX
     Indication: Acute myeloid leukaemia
     Dosage: 400 MILLIGRAM?DURATION TEXT: INTERRUPTION - COUNT RECOVERY
     Route: 048
     Dates: start: 20220522, end: 20220525
  8. VENETOCLAX [Suspect]
     Active Substance: VENETOCLAX
     Indication: Acute myeloid leukaemia
     Dosage: 300 MILLIGRAM?DURATION TEXT: INTERRUPTION-COUNT RECOVERY
     Route: 048
     Dates: start: 20220911, end: 20220924
  9. VENETOCLAX [Suspect]
     Active Substance: VENETOCLAX
     Indication: Acute myeloid leukaemia
     Dosage: RAMP UP
     Route: 048
     Dates: start: 20230226, end: 20230311
  10. VENETOCLAX [Suspect]
     Active Substance: VENETOCLAX
     Indication: Acute myeloid leukaemia
     Dosage: 200 MILLIGRAM?DURATION TEXT: INTERRUPTION-COUNT RECOVERY
     Route: 048
     Dates: start: 20230319, end: 20230401
  11. VENETOCLAX [Suspect]
     Active Substance: VENETOCLAX
     Indication: Acute myeloid leukaemia
     Dosage: 400 MILLIGRAM?DURATION TEXT: RAMP UP
     Route: 048
     Dates: start: 20220106, end: 20220108
  12. VENETOCLAX [Suspect]
     Active Substance: VENETOCLAX
     Indication: Acute myeloid leukaemia
     Dosage: 300 MILLIGRAM?DURATION TEXT: INTERRUPTION-COUNT RECOVERY
     Route: 048
     Dates: start: 20220526, end: 20220611
  13. VENETOCLAX [Suspect]
     Active Substance: VENETOCLAX
     Indication: Acute myeloid leukaemia
     Dosage: 200 MILLIGRAM?DURATION TEXT: INTERRUPTION-COUNT RECOVERY
     Route: 048
     Dates: start: 20230424, end: 20230507
  14. VENETOCLAX [Suspect]
     Active Substance: VENETOCLAX
     Indication: Acute myeloid leukaemia
     Dosage: 400 MILLIGRAM?DURATION TEXT: INTERRUPTION - COUNT RECOVERY
     Route: 048
     Dates: start: 20220313, end: 20220402
  15. VENETOCLAX [Suspect]
     Active Substance: VENETOCLAX
     Indication: Acute myeloid leukaemia
     Dosage: 400 MILLIGRAM?DURATION TEXT: INTERRUPTION - COUNT RECOVERY
     Route: 048
     Dates: start: 20220417, end: 20220507
  16. VENETOCLAX [Suspect]
     Active Substance: VENETOCLAX
     Indication: Acute myeloid leukaemia
     Dosage: 300 MILLIGRAM?DURATION TEXT: INTERRUPTION-COUNT RECOVERY
     Route: 048
     Dates: start: 20220626, end: 20220716
  17. VENETOCLAX [Suspect]
     Active Substance: VENETOCLAX
     Indication: Acute myeloid leukaemia
     Dosage: 200 MILLIGRAM?DURATION TEXT: INTERRUPTION-COUNT RECOVERY
     Route: 048
     Dates: start: 20221225, end: 20230107
  18. VENETOCLAX [Suspect]
     Active Substance: VENETOCLAX
     Indication: Acute myeloid leukaemia
     Dosage: 400 MILLIGRAM?DURATION TEXT: INTERRUPTION - COUNT RECOVERY
     Route: 048
     Dates: start: 20220213, end: 20220305
  19. VENETOCLAX [Suspect]
     Active Substance: VENETOCLAX
     Indication: Acute myeloid leukaemia
     Dosage: 200 MILLIGRAM?DURATION TEXT: INTERRUPTION-COUNT RECOVERY
     Route: 048
     Dates: start: 20221120, end: 20221203
  20. VENETOCLAX [Suspect]
     Active Substance: VENETOCLAX
     Indication: Acute myeloid leukaemia
     Dosage: 200 MILLIGRAM?DURATION TEXT: INTERRUPTION-COUNT RECOVERY
     Route: 048
     Dates: start: 20221016, end: 20221020
  21. VENETOCLAX [Suspect]
     Active Substance: VENETOCLAX
     Indication: Acute myeloid leukaemia
     Dosage: FIRST ADMIN DATE WAS 2023?DURATION TEXT: INTERRUPTION-COUNT RECOVERY
     Route: 048
  22. AZACITIDINE [Suspect]
     Active Substance: AZACITIDINE
     Indication: Acute myeloid leukaemia
     Dosage: 110 MILLIGRAM
     Route: 042
     Dates: start: 20211213, end: 20211220
  23. AZACITIDINE [Suspect]
     Active Substance: AZACITIDINE
     Indication: Acute myeloid leukaemia
     Dosage: 110 MILLIGRAM
     Route: 042
     Dates: start: 20220116, end: 20220120
  24. AZACITIDINE [Suspect]
     Active Substance: AZACITIDINE
     Indication: Acute myeloid leukaemia
     Dosage: 110 MILLIGRAM
     Route: 042
     Dates: start: 20220220, end: 20220221
  25. AZACITIDINE [Suspect]
     Active Substance: AZACITIDINE
     Indication: Acute myeloid leukaemia
     Dosage: 110 MILLIGRAM
     Route: 042
     Dates: start: 20220213, end: 20220217
  26. AZACITIDINE [Suspect]
     Active Substance: AZACITIDINE
     Indication: Acute myeloid leukaemia
     Dosage: 110 MILLIGRAM
     Route: 042
     Dates: start: 20220320, end: 20220321
  27. AZACITIDINE [Suspect]
     Active Substance: AZACITIDINE
     Indication: Acute myeloid leukaemia
     Dosage: 110 MILLIGRAM
     Route: 042
     Dates: start: 20220424, end: 20220425
  28. AZACITIDINE [Suspect]
     Active Substance: AZACITIDINE
     Indication: Acute myeloid leukaemia
     Dosage: 110 MILLIGRAM
     Route: 042
     Dates: start: 20220522, end: 20220526
  29. AZACITIDINE [Suspect]
     Active Substance: AZACITIDINE
     Indication: Acute myeloid leukaemia
     Dosage: 105 MILLIGRAM
     Route: 042
     Dates: start: 20220417, end: 20220421
  30. AZACITIDINE [Suspect]
     Active Substance: AZACITIDINE
     Indication: Acute myeloid leukaemia
     Dosage: 90 MILLIGRAM
     Route: 042
     Dates: start: 20230424, end: 20230427
  31. AZACITIDINE [Suspect]
     Active Substance: AZACITIDINE
     Indication: Acute myeloid leukaemia
     Dosage: 110 MILLIGRAM
     Route: 042
     Dates: start: 20220313, end: 20220317
  32. AZACITIDINE [Suspect]
     Active Substance: AZACITIDINE
     Indication: Acute myeloid leukaemia
     Dosage: 110 MILLIGRAM
     Route: 042
     Dates: start: 20220123, end: 20220124
  33. AZACITIDINE [Suspect]
     Active Substance: AZACITIDINE
     Indication: Acute myeloid leukaemia
     Route: 042
     Dates: start: 20221016, end: 20221020
  34. AZACITIDINE [Suspect]
     Active Substance: AZACITIDINE
     Indication: Acute myeloid leukaemia
     Dosage: 110 MILLIGRAM
     Route: 042
     Dates: start: 20220807, end: 20220808
  35. AZACITIDINE [Suspect]
     Active Substance: AZACITIDINE
     Indication: Acute myeloid leukaemia
     Dosage: 110 MILLIGRAM; CYCLE 11
     Route: 042
     Dates: start: 20221225, end: 20221229
  36. AZACITIDINE [Suspect]
     Active Substance: AZACITIDINE
     Indication: Acute myeloid leukaemia
     Dosage: 110 MILLIGRAM;CYCLE 13
     Route: 042
     Dates: start: 20230226, end: 20230302
  37. AZACITIDINE [Suspect]
     Active Substance: AZACITIDINE
     Indication: Acute myeloid leukaemia
     Dosage: 110 MILLIGRAM
     Route: 042
     Dates: start: 20220626, end: 20220630
  38. AZACITIDINE [Suspect]
     Active Substance: AZACITIDINE
     Indication: Acute myeloid leukaemia
     Dosage: 110 MILLIGRAM; CYCLE 12
     Route: 042
     Dates: start: 20230116, end: 20230124
  39. AZACITIDINE [Suspect]
     Active Substance: AZACITIDINE
     Indication: Acute myeloid leukaemia
     Dosage: 110 MILLIGRAM
     Route: 042
     Dates: start: 20220911, end: 20220915
  40. AZACITIDINE [Suspect]
     Active Substance: AZACITIDINE
     Indication: Acute myeloid leukaemia
     Dosage: 110 MILLIGRAM; CYCLE 10
     Route: 042
     Dates: start: 20221120, end: 20221124
  41. AZACITIDINE [Suspect]
     Active Substance: AZACITIDINE
     Indication: Acute myeloid leukaemia
     Dosage: 110 MILLIGRAM
     Route: 042
     Dates: start: 20220529, end: 20220530
  42. AZACITIDINE [Suspect]
     Active Substance: AZACITIDINE
     Indication: Acute myeloid leukaemia
     Dosage: CYCLE 14
     Route: 042
  43. AZACITIDINE [Suspect]
     Active Substance: AZACITIDINE
     Indication: Acute myeloid leukaemia
     Dosage: 110 MILLIGRAM
     Route: 042
     Dates: start: 20220703, end: 20220704
  44. AZACITIDINE [Suspect]
     Active Substance: AZACITIDINE
     Indication: Acute myeloid leukaemia
     Dosage: 90 MILLIGRAM
     Route: 042
     Dates: start: 20230319, end: 20230323
  45. AZACITIDINE [Suspect]
     Active Substance: AZACITIDINE
     Indication: Acute myeloid leukaemia
     Dosage: 110 MILLIGRAM
     Route: 042
     Dates: start: 20220731, end: 20220804
  46. PRADAXA [Concomitant]
     Active Substance: DABIGATRAN ETEXILATE MESYLATE
     Indication: Cardiovascular disorder
     Route: 065
     Dates: start: 20191226
  47. ALLOPURINOL [Concomitant]
     Active Substance: ALLOPURINOL
     Indication: Prophylaxis
     Route: 065
     Dates: start: 20211209
  48. BISOPROLOL FUMARATE [Concomitant]
     Active Substance: BISOPROLOL FUMARATE
     Indication: Cardiovascular disorder
     Route: 065
     Dates: start: 20191023
  49. Fusid [Concomitant]
     Indication: Cardiovascular disorder
     Route: 065
     Dates: start: 20191226
  50. AMLODIPINE [Concomitant]
     Active Substance: AMLODIPINE BESYLATE
     Indication: Cardiovascular disorder
     Route: 065
     Dates: start: 20211220
  51. AMIODARONE [Concomitant]
     Active Substance: AMIODARONE
     Indication: Arrhythmia prophylaxis
     Dates: start: 20220429

REACTIONS (10)
  - Upper respiratory tract infection [Recovered/Resolved]
  - Pyrexia [Recovered/Resolved]
  - Headache [Recovered/Resolved]
  - Neutropenia [Recovered/Resolved]
  - Hypertension [Recovered/Resolved]
  - Cough [Recovered/Resolved]
  - COVID-19 [Recovered/Resolved]
  - Femoral neck fracture [Recovered/Resolved]
  - Blood pressure diastolic decreased [Recovered/Resolved]
  - Bradycardia [Recovered/Resolved]

NARRATIVE: CASE EVENT DATE: 20211217
